FAERS Safety Report 4548654-3 (Version None)
Quarter: 2005Q1

REPORT INFORMATION
  Report Type: 
  Country: None (occurrence: None)
  Receive Date: 20050106
  Receipt Date: 20040702
  Transmission Date: 20050727
  Serious: Yes (Life-Threatening, Hospitalization)
  Sender: FDA-Public Use
  Company Number: F01200401705

PATIENT
  Age: 76 Year
  Sex: Female

DRUGS (7)
  1. OXALIPLATIN - SOLUTION - 85 MG/M2 [Suspect]
     Indication: COLORECTAL CANCER METASTATIC
     Dosage: 82 MG/M2 Q2W - INTRAVENOUS NOS
     Route: 042
     Dates: start: 20030211, end: 20030211
  2. FLUOROURACIL [Suspect]
     Dosage: 400 MG/M2 BOLUS + 600 MG/M2 22 HOURS INFUSION EVERY 2 WEEKS - INTRAVENOUS NOS
     Route: 042
     Dates: start: 20030211, end: 20030211
  3. LEUCOVORIN CALCIUM [Suspect]
     Dosage: 200 MG/M2 ON D1 AND D2 EVERY 2 WEEKS - INTRAVENOUS NOS
     Route: 042
     Dates: start: 20030211, end: 20030211
  4. BEVACIZUMAB - SOLUTION - 10 MG/KG [Suspect]
     Dosage: 10 MG/KG Q2W - INTRAVENOUS NOS
     Route: 042
     Dates: start: 20030211, end: 20030211
  5. TRIAMTERENE AND HYDROCHLOROTHIAZIDE [Concomitant]
  6. IRON [Concomitant]
  7. MULTI-VITAMIN [Concomitant]

REACTIONS (9)
  - BLOOD CREATININE INCREASED [None]
  - BLOOD LACTATE DEHYDROGENASE INCREASED [None]
  - DISSEMINATED INTRAVASCULAR COAGULATION [None]
  - FLANK PAIN [None]
  - MOUTH HAEMORRHAGE [None]
  - PAIN IN EXTREMITY [None]
  - PROTEIN URINE PRESENT [None]
  - PYREXIA [None]
  - RED BLOOD CELLS URINE POSITIVE [None]
